FAERS Safety Report 14111252 (Version 1)
Quarter: 2017Q4

REPORT INFORMATION
  Report Type: Spontaneous
  Country: JP (occurrence: JP)
  Receive Date: 20171020
  Receipt Date: 20171020
  Transmission Date: 20180321
  Serious: Yes (Other)
  Sender: FDA-Public Use
  Company Number: JP-BAYER-2017-194284

PATIENT

DRUGS (1)
  1. NEXAVAR [Suspect]
     Active Substance: SORAFENIB
     Indication: HEPATOCELLULAR CARCINOMA
     Dosage: UNK, QD
     Route: 048
     Dates: start: 20171003, end: 20171007

REACTIONS (1)
  - Hyperkalaemia [Unknown]

NARRATIVE: CASE EVENT DATE: 20171007
